FAERS Safety Report 9095068 (Version 1)
Quarter: 2013Q1

REPORT INFORMATION
  Report Type: Spontaneous
  Country: US (occurrence: None)
  Receive Date: 20130214
  Receipt Date: 20130214
  Transmission Date: 20140127
  Serious: No
  Sender: FDA-Public Use
  Company Number: None

PATIENT
  Age: 81 Year
  Sex: Female
  Weight: 48.08 kg

DRUGS (1)
  1. DOXYCYCLINE [Suspect]
     Indication: LOCALISED INFECTION
     Dosage: 30 CAPSULSE  2 PER DAY
     Route: 048
     Dates: start: 20121102, end: 20121116

REACTIONS (3)
  - Diarrhoea [None]
  - Weight decreased [None]
  - Onychomadesis [None]
